FAERS Safety Report 20133143 (Version 1)
Quarter: 2021Q4

REPORT INFORMATION
  Report Type: Spontaneous
  Country: CA (occurrence: CA)
  Receive Date: 20211201
  Receipt Date: 20211201
  Transmission Date: 20220304
  Serious: Yes (Other)
  Sender: FDA-Public Use
  Company Number: CA-SAMSUNG BIOEPIS-SB-2021-27709

PATIENT
  Age: 36 Year
  Sex: Female
  Weight: 75 kg

DRUGS (1)
  1. INFLIXIMAB [Suspect]
     Active Substance: INFLIXIMAB
     Indication: Crohn^s disease
     Route: 042

REACTIONS (7)
  - Anal fistula infection [Unknown]
  - Blood pressure increased [Unknown]
  - Dizziness [Unknown]
  - Headache [Unknown]
  - Heart rate increased [Unknown]
  - Intentional product use issue [Unknown]
  - Off label use [Unknown]
